FAERS Safety Report 12009971 (Version 2)
Quarter: 2016Q1

REPORT INFORMATION
  Report Type: Spontaneous
  Country: US (occurrence: US)
  Receive Date: 20160205
  Receipt Date: 20160323
  Transmission Date: 20160526
  Serious: Yes (Other)
  Sender: FDA-Public Use
  Company Number: PHEH2016US002755

PATIENT
  Age: 63 Year
  Sex: Male
  Weight: 125.17 kg

DRUGS (1)
  1. VOTRIENT [Suspect]
     Active Substance: PAZOPANIB HYDROCHLORIDE
     Indication: METASTATIC RENAL CELL CARCINOMA
     Dosage: 800 MG, QD
     Route: 048
     Dates: start: 20150922, end: 20160113

REACTIONS (5)
  - Decreased appetite [Recovered/Resolved]
  - Fatigue [Recovered/Resolved]
  - Depression [Recovered/Resolved]
  - Ageusia [Unknown]
  - Dysgeusia [Recovered/Resolved]

NARRATIVE: CASE EVENT DATE: 20151105
